FAERS Safety Report 7258596-0 (Version None)
Quarter: 2011Q1

REPORT INFORMATION
  Report Type: 
  Country: None (occurrence: None)
  Receive Date: 20110129
  Receipt Date: 20100518
  Transmission Date: 20110831
  Serious: No
  Sender: FDA-Public Use
  Company Number: US-ABBOTT-08P-163-0486143-00

PATIENT
  Sex: Female
  Weight: 77.18 kg

DRUGS (4)
  1. TOPROL-XL [Concomitant]
     Indication: BLOOD PRESSURE
     Route: 048
  2. EYE DROPS [Concomitant]
     Indication: GLAUCOMA
  3. HUMIRA [Suspect]
     Indication: CROHN'S DISEASE
     Route: 058
     Dates: start: 20080301
  4. DIOVAN [Concomitant]
     Indication: BLOOD PRESSURE
     Route: 048

REACTIONS (10)
  - FATIGUE [None]
  - WEIGHT INCREASED [None]
  - PAIN IN EXTREMITY [None]
  - NAUSEA [None]
  - FOOT FRACTURE [None]
  - LETHARGY [None]
  - NEUROPATHY PERIPHERAL [None]
  - FALL [None]
  - INJECTION SITE PAIN [None]
  - HYPOAESTHESIA [None]
